FAERS Safety Report 18845119 (Version 3)
Quarter: 2021Q2

REPORT INFORMATION
  Report Type: Spontaneous
  Country: US (occurrence: US)
  Receive Date: 20210203
  Receipt Date: 20210510
  Transmission Date: 20210717
  Serious: Yes (Other)
  Sender: FDA-Public Use
  Company Number: US-GILEAD-2021-0515732

PATIENT
  Age: 66 Year
  Sex: Male

DRUGS (3)
  1. TRUVADA [Suspect]
     Active Substance: EMTRICITABINE\TENOFOVIR DISOPROXIL FUMARATE
     Dosage: UNK
     Route: 048
     Dates: start: 20150316, end: 20191209
  2. DESCOVY [Concomitant]
     Active Substance: EMTRICITABINE\TENOFOVIR ALAFENAMIDE FUMARATE
  3. TRUVADA [Suspect]
     Active Substance: EMTRICITABINE\TENOFOVIR DISOPROXIL FUMARATE
     Indication: HEPATITIS B
     Dosage: UNK
     Route: 048
     Dates: start: 2018, end: 2020

REACTIONS (12)
  - Bone density abnormal [Unknown]
  - Anhedonia [Unknown]
  - Bone density decreased [Unknown]
  - Bone loss [Unknown]
  - Acute kidney injury [Not Recovered/Not Resolved]
  - Pain [Unknown]
  - Hip fracture [Not Recovered/Not Resolved]
  - Hand fracture [Recovered/Resolved]
  - Osteonecrosis [Unknown]
  - Anxiety [Unknown]
  - Multiple fractures [Unknown]
  - Emotional distress [Unknown]

NARRATIVE: CASE EVENT DATE: 20151023
